FAERS Safety Report 7953049-6 (Version None)
Quarter: 2011Q4

REPORT INFORMATION
  Report Type: 
  Country: None (occurrence: None)
  Receive Date: 20111201
  Receipt Date: 20111124
  Transmission Date: 20120403
  Serious: Yes (Hospitalization)
  Sender: FDA-Public Use
  Company Number: BR-ASTRAZENECA-2011SE52989

PATIENT
  Age: 76 Year
  Sex: Male
  Weight: 72 kg

DRUGS (4)
  1. ATACAND [Suspect]
     Route: 048
  2. ATACAND [Suspect]
     Indication: HYPERTENSION
     Route: 048
     Dates: start: 20090101
  3. BRILINTA [Suspect]
     Route: 048
     Dates: start: 20110701
  4. NASONEX [Concomitant]
     Indication: RHINITIS
     Route: 045

REACTIONS (9)
  - DEHYDRATION [None]
  - ARTERIAL OCCLUSIVE DISEASE [None]
  - ARTERIAL INJURY [None]
  - ACUTE PULMONARY OEDEMA [None]
  - HEART RATE INCREASED [None]
  - ATRIAL FIBRILLATION [None]
  - INFLUENZA [None]
  - GASTROINTESTINAL INFECTION [None]
  - DYSPNOEA [None]
